FAERS Safety Report 12366264 (Version 7)
Quarter: 2017Q4

REPORT INFORMATION
  Report Type: Report from Study
  Country: US (occurrence: US)
  Receive Date: 20160513
  Receipt Date: 20171207
  Transmission Date: 20180320
  Serious: Yes (Hospitalization, Other)
  Sender: FDA-Public Use
  Company Number: US-ACTELION-A-NJ2016-134162

PATIENT
  Age: 69 Year
  Sex: Female
  Weight: 113.38 kg

DRUGS (4)
  1. COUMADIN [Concomitant]
     Active Substance: WARFARIN SODIUM
  2. TRACLEER [Suspect]
     Active Substance: BOSENTAN
     Indication: PULMONARY ARTERIAL HYPERTENSION
     Dosage: 125 MG, BID
     Route: 048
     Dates: start: 20060308, end: 20170501
  3. TRACLEER [Suspect]
     Active Substance: BOSENTAN
     Dosage: 125 UNK, UNK
     Route: 048
  4. DILTIAZEM. [Concomitant]
     Active Substance: DILTIAZEM

REACTIONS (24)
  - Full blood count abnormal [Unknown]
  - Thyroid cancer [Unknown]
  - Drug dose omission [Unknown]
  - Presyncope [Unknown]
  - Lung disorder [Unknown]
  - Central nervous system infection [Unknown]
  - Fall [Unknown]
  - Cardiac arrest [Unknown]
  - Contusion [Unknown]
  - Musculoskeletal discomfort [Unknown]
  - Sleep paralysis [Unknown]
  - Dizziness [Unknown]
  - Decreased appetite [Unknown]
  - Blood pressure fluctuation [Unknown]
  - Malnutrition [Unknown]
  - Blood potassium decreased [Unknown]
  - Dehydration [Unknown]
  - Pain [Unknown]
  - Condition aggravated [Unknown]
  - Blood glucose decreased [Unknown]
  - Atrial fibrillation [Unknown]
  - Urinary tract infection [Unknown]
  - Rheumatoid arthritis [Unknown]
  - Myelopathy [Unknown]
